FAERS Safety Report 4499491-X (Version None)
Quarter: 2004Q4

REPORT INFORMATION
  Report Type: 
  Country: None (occurrence: None)
  Receive Date: 20040928
  Receipt Date: 20040621
  Transmission Date: 20050328
  Serious: No
  Sender: FDA-Public Use
  Company Number: 04P-163-0264417-00

PATIENT
  Age: 41 Year
  Sex: Female
  Weight: 90.7194 kg

DRUGS (9)
  1. HUMIRA [Suspect]
     Indication: RHEUMATOID ARTHRITIS
     Dosage: 40 MG, SUBCUTANEOUS
     Route: 058
     Dates: start: 20040615
  2. METHOTREXATE [Concomitant]
  3. BENAZEPRIL HCL [Concomitant]
  4. ATORVASTATIN CALCIUM [Concomitant]
  5. ACETYLSALICYLIC ACID [Concomitant]
  6. FOLIC ACID [Concomitant]
  7. METFORMIN HCL [Concomitant]
  8. GLIMEPIRIDE [Concomitant]
  9. LEVOTHYROXINE SODIUM [Concomitant]

REACTIONS (1)
  - INJECTION SITE BURNING [None]
